FAERS Safety Report 11070477 (Version 2)
Quarter: 2015Q2

REPORT INFORMATION
  Report Type: Spontaneous
  Country: US (occurrence: US)
  Receive Date: 20150427
  Receipt Date: 20150609
  Transmission Date: 20150821
  Serious: No
  Sender: FDA-Public Use
  Company Number: US-PFIZER INC-2015139561

PATIENT
  Age: 54 Year
  Sex: Male

DRUGS (2)
  1. VIAGRA [Suspect]
     Active Substance: SILDENAFIL CITRATE
     Indication: BLOOD TESTOSTERONE DECREASED
     Dosage: 50 MG, 1X/DAY
     Dates: start: 2013
  2. LYRICA [Suspect]
     Active Substance: PREGABALIN
     Indication: PAIN
     Dosage: 300 MG, 2X/DAY
     Dates: start: 2013

REACTIONS (4)
  - Pain in extremity [Unknown]
  - Back pain [Unknown]
  - Product use issue [Unknown]
  - Malaise [Unknown]
